FAERS Safety Report 4592982-2 (Version None)
Quarter: 2005Q1

REPORT INFORMATION
  Report Type: 
  Country: None (occurrence: None)
  Receive Date: 20050125
  Receipt Date: 20041011
  Transmission Date: 20050727
  Serious: No
  Sender: FDA-Public Use
  Company Number: USA040876322

PATIENT
  Age: 56 Year
  Sex: Male

DRUGS (1)
  1. FORTEO [Suspect]
     Indication: OSTEOPOROSIS
     Dosage: 20 UG/1 EVERY OTHERD AY
     Dates: start: 20040820

REACTIONS (3)
  - ABDOMINAL PAIN [None]
  - FEELING ABNORMAL [None]
  - INFLUENZA LIKE ILLNESS [None]
